FAERS Safety Report 20538688 (Version 1)
Quarter: 2022Q1

REPORT INFORMATION
  Report Type: Spontaneous
  Country: None (occurrence: US)
  Receive Date: 20220302
  Receipt Date: 20220302
  Transmission Date: 20220423
  Serious: Yes (Other)
  Sender: FDA-Public Use
  Company Number: US-Kindeva Drug Delivery L.P.-2126363

PATIENT
  Age: 27 Year
  Sex: Male

DRUGS (4)
  1. ALBUTEROL SULFATE [Suspect]
     Active Substance: ALBUTEROL SULFATE
     Indication: Asthma
  2. BUDESONIDE [Suspect]
     Active Substance: BUDESONIDE
  3. DUPILUMAB [Suspect]
     Active Substance: DUPILUMAB
  4. FORMOTEROL FUMARATE [Suspect]
     Active Substance: FORMOTEROL FUMARATE

REACTIONS (2)
  - Lichen planus [None]
  - Fungal oesophagitis [None]
